FAERS Safety Report 16926157 (Version 6)
Quarter: 2021Q3

REPORT INFORMATION
  Report Type: Report from Study
  Country: US (occurrence: US)
  Receive Date: 20191016
  Receipt Date: 20210825
  Transmission Date: 20211014
  Serious: Yes (Hospitalization, Other)
  Sender: FDA-Public Use
  Company Number: US-SHIRE-US201934174

PATIENT
  Age: 51 Year
  Sex: Male
  Weight: 79.37 kg

DRUGS (20)
  1. TEDUGLUTIDE [Suspect]
     Active Substance: TEDUGLUTIDE
     Indication: SHORT-BOWEL SYNDROME
     Dosage: 4.3 MILLIGRAM, (TED DAILY DOSE MG KG 0.05 MG/KG, TED DOSES PER WEEK 7 DOSES PER WEEK)
     Route: 065
     Dates: start: 20171117, end: 20171130
  2. LEVOFLOXACIN. [Concomitant]
     Active Substance: LEVOFLOXACIN
     Indication: BACTERAEMIA
  3. FERROUS SULFATE. [Concomitant]
     Active Substance: FERROUS SULFATE
     Indication: ANAEMIA
  4. TEDUGLUTIDE [Suspect]
     Active Substance: TEDUGLUTIDE
     Indication: SHORT-BOWEL SYNDROME
     Dosage: 4.3 MILLIGRAM, (TED DAILY DOSE MG KG 0.05 MG/KG, TED DOSES PER WEEK 7 DOSES PER WEEK)
     Route: 065
     Dates: start: 20171117, end: 20171130
  5. TEDUGLUTIDE [Suspect]
     Active Substance: TEDUGLUTIDE
     Dosage: 3.8 MILLIGRAM, (TED DAILY DOSE MG KG 0.04 MILLIGRAM/KILLOGRAM, TED DOSES PER WEEK 7 DOSES PER WEEK)
     Route: 065
     Dates: start: 20191010
  6. TEDUGLUTIDE [Suspect]
     Active Substance: TEDUGLUTIDE
     Dosage: 3.8 MILLIGRAM, (TED DAILY DOSE MG KG 0.04 MILLIGRAM/KILLOGRAM, TED DOSES PER WEEK 7 DOSES PER WEEK)
     Route: 065
     Dates: start: 20191010
  7. TEDUGLUTIDE [Suspect]
     Active Substance: TEDUGLUTIDE
     Indication: SHORT-BOWEL SYNDROME
     Dosage: 4.3 MILLIGRAM, (TED DAILY DOSE MG KG 0.05 MG/KG, TED DOSES PER WEEK 7 DOSES PER WEEK)
     Route: 065
     Dates: start: 20171117, end: 20171130
  8. TEDUGLUTIDE [Suspect]
     Active Substance: TEDUGLUTIDE
     Dosage: 3.8 MILLIGRAM, (TED DAILY DOSE MG KG 0.04 MILLIGRAM/KILLOGRAM, TED DOSES PER WEEK 7 DOSES PER WEEK)
     Route: 065
     Dates: start: 201807, end: 20191003
  9. TEDUGLUTIDE [Suspect]
     Active Substance: TEDUGLUTIDE
     Dosage: 3.8 MILLIGRAM, (TED DAILY DOSE MG KG 0.04 MILLIGRAM/KILLOGRAM, TED DOSES PER WEEK 7 DOSES PER WEEK)
     Route: 065
     Dates: start: 201807, end: 20191003
  10. TEDUGLUTIDE [Suspect]
     Active Substance: TEDUGLUTIDE
     Dosage: 3.8 MILLIGRAM, (TED DAILY DOSE MG KG 0.04 MILLIGRAM/KILLOGRAM, TED DOSES PER WEEK 7 DOSES PER WEEK)
     Route: 065
     Dates: start: 20191010
  11. BACTRIM [Concomitant]
     Active Substance: SULFAMETHOXAZOLE\TRIMETHOPRIM
     Indication: BACTERAEMIA
  12. TEDUGLUTIDE [Suspect]
     Active Substance: TEDUGLUTIDE
     Indication: SHORT-BOWEL SYNDROME
     Dosage: 4.3 MILLIGRAM, (TED DAILY DOSE MG KG 0.05 MG/KG, TED DOSES PER WEEK 7 DOSES PER WEEK)
     Route: 065
     Dates: start: 20171117, end: 20171130
  13. VANCOMYCIN [Concomitant]
     Active Substance: VANCOMYCIN
     Indication: STAPHYLOCOCCAL INFECTION
  14. OPIUM TINCTURE [Concomitant]
     Active Substance: MORPHINE
     Indication: DIARRHOEA
  15. TEDUGLUTIDE [Suspect]
     Active Substance: TEDUGLUTIDE
     Dosage: 3.8 MILLIGRAM, (TED DAILY DOSE MG KG 0.04 MILLIGRAM/KILLOGRAM, TED DOSES PER WEEK 7 DOSES PER WEEK)
     Route: 065
     Dates: start: 201807, end: 20191003
  16. TEDUGLUTIDE [Suspect]
     Active Substance: TEDUGLUTIDE
     Dosage: 3.8 MILLIGRAM, (TED DAILY DOSE MG KG 0.04 MILLIGRAM/KILLOGRAM, TED DOSES PER WEEK 7 DOSES PER WEEK)
     Route: 065
     Dates: start: 20191010
  17. ATIVAN [Concomitant]
     Active Substance: LORAZEPAM
     Indication: SCHIZOPHRENIA
  18. LOMOTIL [LOPERAMIDE HYDROCHLORIDE] [Concomitant]
     Active Substance: LOPERAMIDE HYDROCHLORIDE
     Indication: DIARRHOEA
  19. OMEPRAZOLE. [Concomitant]
     Active Substance: OMEPRAZOLE
     Indication: GASTROOESOPHAGEAL REFLUX DISEASE
  20. TEDUGLUTIDE [Suspect]
     Active Substance: TEDUGLUTIDE
     Dosage: 3.8 MILLIGRAM, (TED DAILY DOSE MG KG 0.04 MILLIGRAM/KILLOGRAM, TED DOSES PER WEEK 7 DOSES PER WEEK)
     Route: 065
     Dates: start: 201807, end: 20191003

REACTIONS (3)
  - Short-bowel syndrome [Not Recovered/Not Resolved]
  - Malnutrition [Recovered/Resolved]
  - Mental impairment [Recovered/Resolved]

NARRATIVE: CASE EVENT DATE: 201910
